FAERS Safety Report 13896874 (Version 1)
Quarter: 2017Q3

REPORT INFORMATION
  Report Type: Spontaneous
  Country: US (occurrence: US)
  Receive Date: 20170821
  Receipt Date: 20170821
  Transmission Date: 20171127
  Serious: Yes (Hospitalization, Other)
  Sender: FDA-Public Use
  Company Number: None

PATIENT
  Age: 64 Year
  Sex: Male
  Weight: 78.75 kg

DRUGS (4)
  1. HARVONI [Suspect]
     Active Substance: LEDIPASVIR\SOFOSBUVIR
     Indication: HEPATITIS C
     Dosage: ?          QUANTITY:56 TABLET(S);?
     Route: 048
     Dates: start: 20161019, end: 20161219
  2. SITAGLIPTIN [Concomitant]
     Active Substance: SITAGLIPTIN
  3. INSULIN FLATLINE [Concomitant]
  4. PRAVASTATIN. [Concomitant]
     Active Substance: PRAVASTATIN

REACTIONS (3)
  - Vomiting [None]
  - Dyspnoea [None]
  - Haematemesis [None]

NARRATIVE: CASE EVENT DATE: 20161106
